FAERS Safety Report 4874341-8 (Version None)
Quarter: 2006Q1

REPORT INFORMATION
  Report Type: 
  Country: None (occurrence: None)
  Receive Date: 20060104
  Receipt Date: 20051221
  Transmission Date: 20060701
  Serious: Yes (Other)
  Sender: FDA-Public Use
  Company Number: 2005171364

PATIENT
  Age: 66 Year
  Sex: Male

DRUGS (4)
  1. MAXAQUIN [Suspect]
     Indication: PROSTATIC DISORDER
     Dates: start: 19950331
  2. CIPROFLOXACIN [Suspect]
     Indication: ILL-DEFINED DISORDER
     Dates: start: 19960502
  3. LEVAQUIN [Suspect]
     Indication: ILL-DEFINED DISORDER
     Dates: start: 20001228
  4. TEQUIN [Suspect]
     Indication: ILL-DEFINED DISORDER
     Dates: start: 20030308

REACTIONS (14)
  - AMNESIA [None]
  - ANXIETY [None]
  - ARRHYTHMIA [None]
  - ARTHRALGIA [None]
  - BACK PAIN [None]
  - DRUG INEFFECTIVE [None]
  - EYE PAIN [None]
  - INSOMNIA [None]
  - MUSCLE SPASMS [None]
  - OCULAR HYPERAEMIA [None]
  - PAIN IN JAW [None]
  - ROTATOR CUFF SYNDROME [None]
  - TENDON RUPTURE [None]
  - VISUAL ACUITY REDUCED [None]
